FAERS Safety Report 17500238 (Version 1)
Quarter: 2020Q1

REPORT INFORMATION
  Report Type: Spontaneous
  Country: US (occurrence: US)
  Receive Date: 20200305
  Receipt Date: 20200305
  Transmission Date: 20200409
  Serious: Yes (Disabling)
  Sender: FDA-Public Use
  Company Number: US-PIRAMAL ENTERPRISES LIMITED-2020-PEL-000085

PATIENT

DRUGS (1)
  1. GABLOFEN [Suspect]
     Active Substance: BACLOFEN
     Indication: PRODUCT USED FOR UNKNOWN INDICATION
     Dosage: 526.2 MICROGRAM, PER DAY
     Route: 037

REACTIONS (4)
  - Muscle spasticity [Unknown]
  - Device infusion issue [Unknown]
  - Product colour issue [Unknown]
  - Hypotonia [Unknown]
